FAERS Safety Report 8592802-5 (Version None)
Quarter: 2012Q3

REPORT INFORMATION
  Report Type: 
  Country: None (occurrence: None)
  Receive Date: 20120814
  Receipt Date: 20120802
  Transmission Date: 20120928
  Serious: No
  Sender: FDA-Public Use
  Company Number: US-BAYER-2012-079352

PATIENT
  Age: 42 Year

DRUGS (3)
  1. TYLENOL PM [Concomitant]
     Dosage: 3 DF, UNK
  2. ALEVE (CAPLET) [Suspect]
     Indication: HEADACHE
     Dosage: 1000 MG, UNK
     Route: 048
  3. PRESCRIPTIONS [Concomitant]

REACTIONS (3)
  - PYREXIA [None]
  - FEELING HOT [None]
  - RASH MACULAR [None]
